FAERS Safety Report 7267131-2 (Version None)
Quarter: 2011Q1

REPORT INFORMATION
  Report Type: 
  Country: None (occurrence: None)
  Receive Date: 20110201
  Receipt Date: 20110119
  Transmission Date: 20110831
  Serious: Yes (Other)
  Sender: FDA-Public Use
  Company Number: PHHY2011ZA04865

PATIENT
  Age: 78 Year
  Sex: Female

DRUGS (5)
  1. BISOPROLOL [Concomitant]
  2. PREDNISONE [Concomitant]
  3. SALAZOPYRIN [Concomitant]
  4. B-CAL [Concomitant]
  5. ACLASTA [Suspect]
     Dosage: 5 MG/100 ML
     Dates: start: 20091201

REACTIONS (4)
  - FALL [None]
  - ATRIAL FIBRILLATION [None]
  - MALAISE [None]
  - CARDIAC FAILURE CONGESTIVE [None]
